FAERS Safety Report 10564861 (Version 2)
Quarter: 2014Q4

REPORT INFORMATION
  Report Type: Report from Study
  Country: RU (occurrence: RU)
  Receive Date: 20141105
  Receipt Date: 20141208
  Transmission Date: 20150529
  Serious: Yes (Hospitalization)
  Sender: FDA-Public Use
  Company Number: RU-ROCHE-1481117

PATIENT
  Age: 66 Year
  Sex: Male
  Weight: 81 kg

DRUGS (26)
  1. BENDAMUSTINE [Suspect]
     Active Substance: BENDAMUSTINE
     Dosage: C1D2. (70MG/M2)?FREQUENCY DAY 1-2 OF EACH CYCLE.
     Route: 042
     Dates: start: 20140530
  2. ACETYLSALICYLIC ACID [Concomitant]
     Active Substance: ASPIRIN
     Route: 048
     Dates: start: 20140530
  3. AZITHROMYCIN [Concomitant]
     Active Substance: AZITHROMYCIN ANHYDROUS
     Route: 048
     Dates: start: 20140825, end: 20140829
  4. BENDAMUSTINE [Suspect]
     Active Substance: BENDAMUSTINE
     Dosage: C3D1. (70MG/M2)?FREQUENCY DAY 1-2 OF EACH CYCLE.
     Route: 042
     Dates: start: 20140725
  5. ACICLOVIR [Concomitant]
     Active Substance: ACYCLOVIR
     Indication: PROPHYLAXIS
     Route: 048
     Dates: start: 20140901, end: 20141021
  6. OBINUTUZUMAB [Suspect]
     Active Substance: OBINUTUZUMAB
     Dosage: C3D1. INFUSION RATE = 100 MG/H.
     Route: 042
     Dates: start: 20140725
  7. OBINUTUZUMAB [Suspect]
     Active Substance: OBINUTUZUMAB
     Dosage: C4D1. INFUSION RATE = 100 MG/H.
     Route: 042
     Dates: start: 20140902
  8. BENDAMUSTINE [Suspect]
     Active Substance: BENDAMUSTINE
     Dosage: C6D2; 70 MG/M2; FREQUENCY DAY 1-2 OF EACH CYCLE.
     Route: 042
     Dates: start: 20141022
  9. BENDAMUSTINE [Suspect]
     Active Substance: BENDAMUSTINE
     Dosage: C5D1. (70MG/M2)?FREQUENCY DAY 1-2 OF EACH CYCLE.
     Route: 042
     Dates: start: 20140925
  10. BENDAMUSTINE [Suspect]
     Active Substance: BENDAMUSTINE
     Dosage: C4D1. (70MG/M2)?FREQUENCY DAY 1-2 OF EACH CYCLE.
     Route: 042
     Dates: start: 20140902
  11. OBINUTUZUMAB [Suspect]
     Active Substance: OBINUTUZUMAB
     Indication: CHRONIC LYMPHOCYTIC LEUKAEMIA
     Dosage: C1D1. INFUSION RATE = 25 MG/H.?LAST DOSE PRIOR TO SAE 21 OCT 2014
     Route: 042
     Dates: start: 20140529
  12. OBINUTUZUMAB [Suspect]
     Active Substance: OBINUTUZUMAB
     Dosage: C1D2. INFUSION RATE = 50 MG/H.
     Route: 042
     Dates: start: 20140530
  13. OBINUTUZUMAB [Suspect]
     Active Substance: OBINUTUZUMAB
     Dosage: C1D8. INFUSION RATE = 100 MG/H.
     Route: 042
     Dates: start: 20140605
  14. BENDAMUSTINE [Suspect]
     Active Substance: BENDAMUSTINE
     Dosage: C2D1. (70MG/M2)?FREQUENCY DAY 1-2 OF EACH CYCLE.
     Route: 042
     Dates: start: 20140630
  15. ALLOPURINOL. [Concomitant]
     Active Substance: ALLOPURINOL
     Indication: PROPHYLAXIS
     Route: 048
     Dates: start: 20140521
  16. OBINUTUZUMAB [Suspect]
     Active Substance: OBINUTUZUMAB
     Dosage: C2D1. INFUSION RATE = 25 MG/H.
     Route: 042
     Dates: start: 20140630
  17. OBINUTUZUMAB [Suspect]
     Active Substance: OBINUTUZUMAB
     Dosage: C5D1. INFUSION RATE = 100 MG/H.
     Route: 042
     Dates: start: 20140925
  18. OBINUTUZUMAB [Suspect]
     Active Substance: OBINUTUZUMAB
     Dosage: C6D1. INFUSION RATE = 100 MG/H.
     Route: 042
     Dates: start: 20141021, end: 20141021
  19. BENDAMUSTINE [Suspect]
     Active Substance: BENDAMUSTINE
     Dosage: C2D2. (70MG/M2)?FREQUENCY DAY 1-2 OF EACH CYCLE.
     Route: 042
     Dates: start: 20140701
  20. BENDAMUSTINE [Suspect]
     Active Substance: BENDAMUSTINE
     Dosage: C5D2. (70MG/M2)?FREQUENCY DAY 1-2 OF EACH CYCLE.
     Route: 042
     Dates: start: 20140926
  21. AMOXICILLIN/CLAVULANATE [Concomitant]
     Active Substance: AMOXICILLIN\CLAVULANATE POTASSIUM
     Route: 048
     Dates: start: 20140804, end: 20140808
  22. OBINUTUZUMAB [Suspect]
     Active Substance: OBINUTUZUMAB
     Dosage: C1D15. INFUSION RATE = 100 MG/H.
     Route: 042
     Dates: start: 20140612
  23. BENDAMUSTINE [Suspect]
     Active Substance: BENDAMUSTINE
     Indication: CHRONIC LYMPHOCYTIC LEUKAEMIA
     Dosage: C1D1. (70MG/M2)?FREQUENCY DAY 1-2 OF EACH CYCLE.? LAST DOSE PRIOR TO SAE: 22 OCT 2014
     Route: 042
     Dates: start: 20140529
  24. BENDAMUSTINE [Suspect]
     Active Substance: BENDAMUSTINE
     Dosage: C3D2. (70MG/M2)?FREQUENCY DAY 1-2 OF EACH CYCLE.
     Route: 042
     Dates: start: 20140726
  25. BENDAMUSTINE [Suspect]
     Active Substance: BENDAMUSTINE
     Dosage: C4D2. (70MG/M2)?FREQUENCY DAY 1-2 OF EACH CYCLE.
     Route: 042
     Dates: start: 20140903
  26. BENDAMUSTINE [Suspect]
     Active Substance: BENDAMUSTINE
     Dosage: 70 MG/M2; C6D1; FREQUENCY DAY 1-2 OF EACH CYCLE.
     Route: 042
     Dates: start: 20141021, end: 20141021

REACTIONS (1)
  - Pneumonia [Recovering/Resolving]

NARRATIVE: CASE EVENT DATE: 20141027
